FAERS Safety Report 11862829 (Version 1)
Quarter: 2015Q4

REPORT INFORMATION
  Report Type: Report from Study
  Country: US (occurrence: US)
  Receive Date: 20151223
  Receipt Date: 20151223
  Transmission Date: 20160305
  Serious: Yes (Other)
  Sender: FDA-Public Use
  Company Number: US-AMGEN-USASL2015135575

PATIENT
  Age: 61 Year
  Sex: Female

DRUGS (1)
  1. ENBREL [Suspect]
     Active Substance: ETANERCEPT
     Indication: RHEUMATOID ARTHRITIS
     Dosage: 50 MG, QWK
     Route: 065
     Dates: start: 20110901

REACTIONS (7)
  - Cervical radiculopathy [Unknown]
  - Contusion [Unknown]
  - Post procedural infection [Unknown]
  - Injection site pain [Unknown]
  - Asthenia [Unknown]
  - Arthritis [Unknown]
  - Exostosis [Unknown]

NARRATIVE: CASE EVENT DATE: 2015
